FAERS Safety Report 4725918-1 (Version None)
Quarter: 2005Q3

REPORT INFORMATION
  Report Type: 
  Country: None (occurrence: None)
  Receive Date: 20050727
  Receipt Date: 20050715
  Transmission Date: 20060218
  Serious: Yes (Other)
  Sender: FDA-Public Use
  Company Number: JP-JNJFOC-20050702676

PATIENT
  Age: 85 Year
  Sex: Female

DRUGS (1)
  1. TAVANIC [Suspect]
     Indication: RESPIRATORY DISORDER
     Route: 065

REACTIONS (4)
  - AGGRESSION [None]
  - ANXIETY [None]
  - HALLUCINATION, VISUAL [None]
  - TREMOR [None]
